FAERS Safety Report 17724535 (Version 2)
Quarter: 2020Q2

REPORT INFORMATION
  Report Type: Report from Study
  Country: PA (occurrence: PA)
  Receive Date: 20200429
  Receipt Date: 20200512
  Transmission Date: 20200714
  Serious: Yes (Other)
  Sender: FDA-Public Use
  Company Number: NVSC2020PA086986

PATIENT
  Age: 30 Year
  Sex: Female
  Weight: 65.7 kg

DRUGS (3)
  1. COSENTYX [Suspect]
     Active Substance: SECUKINUMAB
     Indication: PSORIASIS
     Dosage: 300 MG, QMO (BENEATH THE SKIN, USUALLY VIA INJECTION)
     Route: 058
     Dates: start: 20190920
  2. COSENTYX [Suspect]
     Active Substance: SECUKINUMAB
     Dosage: 300 MG, QMO
     Route: 058
  3. SCAPHO [Suspect]
     Active Substance: SECUKINUMAB
     Indication: PSORIASIS
     Dosage: 2 DF, QMO
     Route: 058
     Dates: start: 201909

REACTIONS (10)
  - Heart rate increased [Unknown]
  - Anxiety [Not Recovered/Not Resolved]
  - Ear discomfort [Not Recovered/Not Resolved]
  - Nervousness [Unknown]
  - Inappropriate affect [Not Recovered/Not Resolved]
  - Otorrhoea [Recovering/Resolving]
  - Pain [Not Recovered/Not Resolved]
  - Fear [Unknown]
  - Psoriasis [Recovering/Resolving]
  - Parosmia [Unknown]

NARRATIVE: CASE EVENT DATE: 202002
